FAERS Safety Report 11503968 (Version 1)
Quarter: 2015Q3

REPORT INFORMATION
  Report Type: Report from Study
  Country: JP (occurrence: JP)
  Receive Date: 20150914
  Receipt Date: 20150914
  Transmission Date: 20151125
  Serious: Yes (Other)
  Sender: FDA-Public Use
  Company Number: JP-009507513-1509JPN006112

PATIENT
  Age: 68 Year
  Sex: Male

DRUGS (16)
  1. DEXAMETHASONE SODIUM PHOSPHATE. [Concomitant]
     Active Substance: DEXAMETHASONE SODIUM PHOSPHATE
     Dosage: DAILY DOSAGE UNKNOWN
     Route: 065
     Dates: start: 20110913
  2. SULFAMETHOXAZOLE AND TRIMETHOPRIM [Concomitant]
     Active Substance: SULFAMETHOXAZOLE\TRIMETHOPRIM
     Indication: PROPHYLAXIS
     Dosage: 1 DF, BID
     Route: 048
  3. DEXAMETHASONE SODIUM PHOSPHATE. [Concomitant]
     Active Substance: DEXAMETHASONE SODIUM PHOSPHATE
     Indication: MYCOSIS FUNGOIDES
     Dosage: DAILY DOSAGE UNKNOWN
     Route: 065
     Dates: start: 201011
  4. MIYA-BM [Concomitant]
     Active Substance: CLOSTRIDIUM BUTYRICUM SPORES STRAIN M-55
     Indication: PROPHYLAXIS
     Dosage: 1 G, TID
     Route: 048
  5. VFEND [Concomitant]
     Active Substance: VORICONAZOLE
     Indication: PROPHYLAXIS
     Dosage: 400 MG, BID
     Route: 048
     Dates: end: 20111106
  6. ZOLINZA [Suspect]
     Active Substance: VORINOSTAT
     Dosage: 300 MG, QD
     Route: 048
     Dates: start: 20111110, end: 20111116
  7. METHOTREXATE [Concomitant]
     Active Substance: METHOTREXATE
     Indication: MYCOSIS FUNGOIDES
     Dosage: DAILY DOSAGE UNKNOWN
     Route: 065
     Dates: start: 20110830
  8. ZOLINZA [Suspect]
     Active Substance: VORINOSTAT
     Indication: MYCOSIS FUNGOIDES
     Dosage: 400 MG, QD
     Route: 048
     Dates: start: 20111101, end: 20111104
  9. FILDESIN [Concomitant]
     Active Substance: VINDESINE SULFATE
     Indication: MYCOSIS FUNGOIDES
     Dosage: DAILY DOSAGE UNKNOWN
     Route: 042
     Dates: start: 201011
  10. PARAPLATIN [Concomitant]
     Active Substance: CARBOPLATIN
     Indication: MYCOSIS FUNGOIDES
     Dosage: DAILY DOSAGE UNKNOWN
     Route: 041
     Dates: start: 20110913
  11. IFOMIDE [Concomitant]
     Active Substance: IFOSFAMIDE
     Indication: MYCOSIS FUNGOIDES
     Dosage: DAILY DOSAGE UNKNOWN
     Route: 042
     Dates: start: 20110913
  12. MAGMITT [Concomitant]
     Active Substance: MAGNESIUM OXIDE
     Indication: PROPHYLAXIS
     Dosage: 660 MG, TID
     Route: 048
  13. CYTARABINE. [Concomitant]
     Active Substance: CYTARABINE
     Indication: MYCOSIS FUNGOIDES
     Dosage: DAILY DOSAGE UNKNOWN
     Route: 065
     Dates: start: 20110808
  14. ETOPOSIDE. [Concomitant]
     Active Substance: ETOPOSIDE
     Indication: MYCOSIS FUNGOIDES
     Dosage: DAILY DOSAGE UNKNOWN
     Route: 065
     Dates: start: 20110913
  15. CAMPTO [Concomitant]
     Active Substance: IRINOTECAN
     Indication: MYCOSIS FUNGOIDES
     Dosage: DAILY DOSAGE UNKNOWN
     Route: 041
     Dates: start: 20110808
  16. TAKEPRON [Concomitant]
     Active Substance: LANSOPRAZOLE
     Indication: PROPHYLAXIS
     Dosage: 15 MG, QD
     Route: 048

REACTIONS (2)
  - Bone marrow failure [Not Recovered/Not Resolved]
  - Nausea [Recovered/Resolved]

NARRATIVE: CASE EVENT DATE: 20111104
